FAERS Safety Report 25090761 (Version 2)
Quarter: 2025Q2

REPORT INFORMATION
  Report Type: Spontaneous
  Country: US (occurrence: US)
  Receive Date: 20250318
  Receipt Date: 20250418
  Transmission Date: 20250716
  Serious: No
  Sender: MERCK SHARP & DOHME LLC
  Company Number: US-009507513-2263678

PATIENT
  Sex: Male
  Weight: 93 kg

DRUGS (11)
  1. SOTATERCEPT [Suspect]
     Active Substance: SOTATERCEPT
     Indication: Product used for unknown indication
  2. SOTATERCEPT [Suspect]
     Active Substance: SOTATERCEPT
  3. SOTATERCEPT [Suspect]
     Active Substance: SOTATERCEPT
  4. SOTATERCEPT [Suspect]
     Active Substance: SOTATERCEPT
  5. ORENITRAM [Suspect]
     Active Substance: TREPROSTINIL
     Indication: Pulmonary arterial hypertension
     Route: 048
  6. ADEMPAS [Suspect]
     Active Substance: RIOCIGUAT
     Dosage: 5 MG DAILY
  7. OPSUMIT [Concomitant]
     Active Substance: MACITENTAN
  8. PROCARDIA [Concomitant]
     Active Substance: NIFEDIPINE
  9. OMEPRAZOLE [Concomitant]
     Active Substance: OMEPRAZOLE
  10. BUMETANIDE [Concomitant]
     Active Substance: BUMETANIDE
  11. ALYQ [Concomitant]
     Active Substance: TADALAFIL

REACTIONS (6)
  - Hypotension [Unknown]
  - Dizziness [Recovering/Resolving]
  - Flushing [Recovering/Resolving]
  - Headache [Recovering/Resolving]
  - Nausea [Recovering/Resolving]
  - Vomiting [Unknown]
